FAERS Safety Report 11884532 (Version 1)
Quarter: 2016Q1

REPORT INFORMATION
  Report Type: Report from Study
  Country: US (occurrence: US)
  Receive Date: 20160104
  Receipt Date: 20160104
  Transmission Date: 20160526
  Serious: No
  Sender: FDA-Public Use
  Company Number: PHEH2015US027257

PATIENT
  Sex: Male

DRUGS (3)
  1. ENTRESTO [Suspect]
     Active Substance: SACUBITRIL\VALSARTAN
     Indication: PRODUCT USED FOR UNKNOWN INDICATION
     Dosage: 24/26 MG, UNK
     Route: 065
     Dates: start: 201510
  2. ENTRESTO [Suspect]
     Active Substance: SACUBITRIL\VALSARTAN
     Dosage: 97/103 MG, UNK
     Route: 048
     Dates: start: 20151125
  3. ENTRESTO [Suspect]
     Active Substance: SACUBITRIL\VALSARTAN
     Dosage: 49/51 MG, UNK
     Route: 048

REACTIONS (5)
  - Waist circumference increased [Recovering/Resolving]
  - Malaise [Recovering/Resolving]
  - Blood pressure fluctuation [Unknown]
  - Fatigue [Recovering/Resolving]
  - Localised intraabdominal fluid collection [Recovering/Resolving]
